FAERS Safety Report 16154396 (Version 1)
Quarter: 2019Q2

REPORT INFORMATION
  Report Type: Report from Study
  Country: GB (occurrence: GB)
  Receive Date: 20190403
  Receipt Date: 20190403
  Transmission Date: 20190711
  Serious: Yes (Hospitalization, Other)
  Sender: FDA-Public Use
  Company Number: GB-TEVA-2019-GB-1032621

PATIENT
  Sex: Female

DRUGS (8)
  1. STATINS [Concomitant]
     Active Substance: UNSPECIFIED INGREDIENT
  2. CLOPIDOGREL [Concomitant]
     Active Substance: CLOPIDOGREL BISULFATE
  3. AMITRIPTYLINE [Concomitant]
     Active Substance: AMITRIPTYLINE
  4. DULOXETINE. [Concomitant]
     Active Substance: DULOXETINE
  5. RAPIDOL [Concomitant]
     Active Substance: IBUPROFEN
  6. TIZANIDINE. [Concomitant]
     Active Substance: TIZANIDINE
  7. COPAXONE [Suspect]
     Active Substance: GLATIRAMER ACETATE
     Route: 058
     Dates: start: 20070525
  8. LAMOTRIGINE. [Concomitant]
     Active Substance: LAMOTRIGINE

REACTIONS (24)
  - Impaired work ability [Not Recovered/Not Resolved]
  - Oropharyngeal pain [Recovered/Resolved]
  - Injection site scar [Not Recovered/Not Resolved]
  - Injection site discolouration [Not Recovered/Not Resolved]
  - Injection site haemorrhage [Unknown]
  - Optic neuritis [Not Recovered/Not Resolved]
  - Urinary tract infection [Unknown]
  - Colour blindness acquired [Not Recovered/Not Resolved]
  - Motor dysfunction [Unknown]
  - Communication disorder [Unknown]
  - Influenza [Recovered/Resolved]
  - Multiple sclerosis relapse [Unknown]
  - Abdominal pain upper [Recovered/Resolved]
  - Injection site pain [Unknown]
  - Diplopia [Not Recovered/Not Resolved]
  - Hypotension [Recovered/Resolved]
  - Transient ischaemic attack [Recovered/Resolved]
  - Syncope [Recovered/Resolved]
  - Injection site pain [Recovering/Resolving]
  - Injection site swelling [Recovering/Resolving]
  - Fall [Recovered/Resolved]
  - Visual impairment [Not Recovered/Not Resolved]
  - Eye disorder [Not Recovered/Not Resolved]
  - Hypertension [Unknown]

NARRATIVE: CASE EVENT DATE: 2010
